FAERS Safety Report 17872783 (Version 1)
Quarter: 2020Q2

REPORT INFORMATION
  Report Type: Report from Study
  Country: ES (occurrence: ES)
  Receive Date: 20200608
  Receipt Date: 20200608
  Transmission Date: 20200714
  Serious: Yes (Hospitalization)
  Sender: FDA-Public Use
  Company Number: ES-AMGEN-ESPCT2020089383

PATIENT
  Age: 54 Year
  Sex: Female
  Weight: 77 kg

DRUGS (8)
  1. BLINATUMOMAB [Suspect]
     Active Substance: BLINATUMOMAB
     Indication: ACUTE LYMPHOCYTIC LEUKAEMIA
     Route: 065
  2. MERCAPTOPURIN [Suspect]
     Active Substance: MERCAPTOPURINE
     Indication: ACUTE LYMPHOCYTIC LEUKAEMIA
     Dosage: 50 MILLIGRAM, QD
     Route: 065
     Dates: start: 20190429, end: 20200519
  3. OPTOVITE B12 [Concomitant]
     Active Substance: CYANOCOBALAMIN
     Indication: COLOSTOMY
     Dosage: 1000 MICROGRAM, QMO
     Route: 048
     Dates: start: 201904
  4. ACFOL [Concomitant]
     Active Substance: FOLIC ACID
     Indication: COLOSTOMY
     Dosage: 5 MILLIGRAM, QD
     Route: 048
     Dates: start: 201904
  5. LORMETAZEPAM [Concomitant]
     Active Substance: LORMETAZEPAM
     Indication: ANXIETY DISORDER
     Dosage: 1 MILLIGRAM, QD
     Route: 048
     Dates: start: 201805
  6. OMEPRAZOL [OMEPRAZOLE] [Concomitant]
     Active Substance: OMEPRAZOLE
     Indication: PROPHYLAXIS
     Dosage: 20 MILLIGRAM, QD
     Route: 048
  7. METOTREXAT [METHOTREXATE] [Suspect]
     Active Substance: METHOTREXATE
     Indication: ACUTE LYMPHOCYTIC LEUKAEMIA
     Dosage: 20 MILLIGRAM, QWK
     Route: 065
     Dates: start: 20190429, end: 20200519
  8. FLUOXETIN [Concomitant]
     Active Substance: FLUOXETINE HYDROCHLORIDE
     Indication: ANXIETY DISORDER
     Dosage: 20 MILLIGRAM, QD
     Route: 048
     Dates: start: 201805

REACTIONS (1)
  - Intestinal obstruction [Recovered/Resolved]

NARRATIVE: CASE EVENT DATE: 20200520
